FAERS Safety Report 24271550 (Version 1)
Quarter: 2024Q3

REPORT INFORMATION
  Report Type: Spontaneous
  Country: US (occurrence: US)
  Receive Date: 20240901
  Receipt Date: 20240901
  Transmission Date: 20241017
  Serious: Yes (Other)
  Sender: BRISTOL MYERS SQUIBB
  Company Number: US-BRISTOL-MYERS SQUIBB COMPANY-2024-137008

PATIENT
  Age: 84 Year
  Sex: Male
  Weight: 83.91 kg

DRUGS (5)
  1. ELIQUIS [Suspect]
     Active Substance: APIXABAN
     Indication: Atrial fibrillation
     Route: 048
     Dates: start: 20240201
  2. METOPROLOL SUCCINATE [Concomitant]
     Active Substance: METOPROLOL SUCCINATE
     Indication: Atrial fibrillation
  3. TORSEMIDE [Concomitant]
     Active Substance: TORSEMIDE
     Indication: Weight increased
     Dosage: AVERAGE 2 TO 3 TIMES WEEKLY
  4. TORSEMIDE [Concomitant]
     Active Substance: TORSEMIDE
     Indication: Abdominal distension
  5. ALDACTONE [Concomitant]
     Active Substance: SPIRONOLACTONE
     Route: 048
     Dates: start: 20231226

REACTIONS (1)
  - Cardiac amyloidosis [Unknown]

NARRATIVE: CASE EVENT DATE: 20240802
